FAERS Safety Report 4477629-8 (Version None)
Quarter: 2004Q4

REPORT INFORMATION
  Report Type: 
  Country: None (occurrence: None)
  Receive Date: 20041014
  Receipt Date: 20041012
  Transmission Date: 20050328
  Serious: Yes (Hospitalization)
  Sender: FDA-Public Use
  Company Number: US-2004-025770

PATIENT
  Age: 75 Year
  Sex: Male

DRUGS (5)
  1. BETAPACE [Suspect]
     Indication: ATRIAL FIBRILLATION
     Dosage: 80 MG, 2X/DAY, ORAL; 120 MG, 2X/DAY, ORAL
     Route: 048
     Dates: start: 20040425, end: 20040514
  2. BETAPACE [Suspect]
     Indication: ATRIAL FIBRILLATION
     Dosage: 80 MG, 2X/DAY, ORAL; 120 MG, 2X/DAY, ORAL
     Route: 048
     Dates: start: 20040514, end: 20040524
  3. TYLENOL [Concomitant]
  4. PREVACID [Concomitant]
  5. INDERAL   WYETH-AYERST (PROPRANOLOL HYDROCHLORIDE) [Concomitant]

REACTIONS (12)
  - AGITATION [None]
  - ATRIAL FIBRILLATION [None]
  - DECREASED APPETITE [None]
  - DEPRESSION [None]
  - DISEASE RECURRENCE [None]
  - FATIGUE [None]
  - LUNG INFECTION [None]
  - MEDICAL DEVICE COMPLICATION [None]
  - MOOD ALTERED [None]
  - PLEURAL INFECTION [None]
  - PNEUMOTHORAX [None]
  - POSTOPERATIVE INFECTION [None]
